FAERS Safety Report 4738104-6 (Version None)
Quarter: 2005Q3

REPORT INFORMATION
  Report Type: 
  Country: None (occurrence: None)
  Receive Date: 20050805
  Receipt Date: 20050805
  Transmission Date: 20060218
  Serious: Yes (Death)
  Sender: FDA-Public Use
  Company Number: None

PATIENT
  Age: 77 Year
  Sex: Female

DRUGS (5)
  1. HEPARIN [Suspect]
     Indication: ACUTE MYOCARDIAL INFARCTION
     Dosage: HEPARIN IV
     Route: 042
     Dates: start: 20040206
  2. HEPARIN [Suspect]
     Indication: RENAL FAILURE
     Dosage: HEPARIN IV
     Route: 042
     Dates: start: 20040206
  3. INTEGRILIN [Suspect]
     Indication: CARDIOGENIC SHOCK
     Dosage: INTEGRILIN IV
     Route: 042
     Dates: start: 20040206
  4. ASPIRIN [Concomitant]
  5. PLAVIX [Concomitant]

REACTIONS (4)
  - CARDIAC DISORDER [None]
  - EJECTION FRACTION DECREASED [None]
  - LOSS OF CONSCIOUSNESS [None]
  - MOUTH HAEMORRHAGE [None]
